FAERS Safety Report 20434459 (Version 3)
Quarter: 2022Q1

REPORT INFORMATION
  Report Type: Spontaneous
  Country: AR (occurrence: AR)
  Receive Date: 20220206
  Receipt Date: 20220323
  Transmission Date: 20220423
  Serious: Yes (Hospitalization, Other)
  Sender: FDA-Public Use
  Company Number: AR-NOVARTISPH-NVSC2022AR025342

PATIENT
  Age: 73 Year
  Sex: Male

DRUGS (4)
  1. ENTRESTO [Suspect]
     Active Substance: SACUBITRIL\VALSARTAN
     Indication: Cardiac failure
     Dosage: UNK UNK, QD, (ONE TABLET PER DAY SPLIT IN 2 PARTS), (START DATE WAS 2 YEARS AGO)
     Route: 065
  2. ENTRESTO [Suspect]
     Active Substance: SACUBITRIL\VALSARTAN
     Dosage: 50 MG, BID
     Route: 065
  3. NODIS [Concomitant]
     Indication: Blood cholesterol abnormal
     Dosage: UNK UNK, QD (1 X 5 (UNITS NOT PROVIDED)
     Route: 065
  4. ALDACTONE [Concomitant]
     Active Substance: SPIRONOLACTONE
     Indication: Cardiac failure
     Dosage: 25 MG, QD
     Route: 065

REACTIONS (4)
  - Syncope [Recovered/Resolved]
  - Loss of consciousness [Recovered/Resolved]
  - Arterial disorder [Unknown]
  - Wrong technique in product usage process [Recovered/Resolved]

NARRATIVE: CASE EVENT DATE: 20220129
